FAERS Safety Report 13487512 (Version 1)
Quarter: 2017Q2

REPORT INFORMATION
  Report Type: Spontaneous
  Country: US (occurrence: US)
  Receive Date: 20170426
  Receipt Date: 20170426
  Transmission Date: 20170830
  Serious: No
  Sender: FDA-Public Use
  Company Number: US-ALKERMES INC.-ALK-2016-003143

PATIENT
  Age: 29 Year
  Sex: Male
  Weight: 95.24 kg

DRUGS (2)
  1. GABAPENTIN. [Concomitant]
     Active Substance: GABAPENTIN
     Indication: PRODUCT USED FOR UNKNOWN INDICATION
     Dosage: UNK
     Route: 065
  2. VIVITROL [Suspect]
     Active Substance: NALTREXONE
     Indication: DRUG USE DISORDER
     Dosage: 380 MG, QMO
     Route: 030
     Dates: start: 20160923

REACTIONS (12)
  - Tremor [Unknown]
  - Fatigue [Unknown]
  - Abdominal distension [Unknown]
  - Flushing [Unknown]
  - Abdominal pain upper [Unknown]
  - Frequent bowel movements [Unknown]
  - Drug use disorder [Unknown]
  - Hypersomnia [Unknown]
  - Asthenia [Unknown]
  - Emotional distress [Unknown]
  - Vomiting [Unknown]
  - Influenza like illness [Unknown]

NARRATIVE: CASE EVENT DATE: 201610
